FAERS Safety Report 7632538-8 (Version None)
Quarter: 2011Q3

REPORT INFORMATION
  Report Type: 
  Country: None (occurrence: None)
  Receive Date: 20110725
  Receipt Date: 20110301
  Transmission Date: 20111222
  Serious: No
  Sender: FDA-Public Use
  Company Number: US-BRISTOL-MYERS SQUIBB COMPANY-15319544

PATIENT
  Age: 27 Year
  Sex: Female
  Weight: 57 kg

DRUGS (4)
  1. COUMADIN [Suspect]
     Indication: PULMONARY EMBOLISM
     Dosage: 1 DF:4-5MG SINCE OCT-2009
     Route: 048
     Dates: start: 20091001, end: 20100914
  2. VITAMIN TAB [Concomitant]
  3. COUMADIN [Suspect]
     Indication: DEEP VEIN THROMBOSIS
     Dosage: 1 DF:4-5MG SINCE OCT-2009
     Route: 048
     Dates: start: 20091001, end: 20100914
  4. METOPROLOL TARTRATE [Concomitant]

REACTIONS (5)
  - INTERNATIONAL NORMALISED RATIO FLUCTUATION [None]
  - RASH [None]
  - INFLUENZA LIKE ILLNESS [None]
  - HEART RATE INCREASED [None]
  - CHEST PAIN [None]
